FAERS Safety Report 6783953-6 (Version None)
Quarter: 2010Q2

REPORT INFORMATION
  Report Type: 
  Country: None (occurrence: None)
  Receive Date: 20100622
  Receipt Date: 20090720
  Transmission Date: 20101027
  Serious: No
  Sender: FDA-Public Use
  Company Number: US-BRISTOL-MYERS SQUIBB COMPANY-14654909

PATIENT
  Age: 93 Year
  Sex: Male
  Weight: 83 kg

DRUGS (8)
  1. SINEMET [Suspect]
     Indication: DEMENTIA ALZHEIMER'S TYPE
     Dosage: 1 DF= 25/100MG,1ST WEEK. DECREASED TO HALF ON AN UNKNOWN DATE
     Dates: start: 20090101, end: 20090101
  2. SINEMET [Suspect]
     Indication: PARKINSONISM
     Dosage: 1 DF= 25/100MG,1ST WEEK. DECREASED TO HALF ON AN UNKNOWN DATE
     Dates: start: 20090101, end: 20090101
  3. EXELON [Concomitant]
     Dosage: EXELON PATCH
  4. NAMENDA [Concomitant]
  5. CELEXA [Concomitant]
  6. VITAMIN B COMPLEX CAP [Concomitant]
  7. ASPIRIN [Concomitant]
  8. VITAMIN D [Concomitant]

REACTIONS (3)
  - DYSKINESIA [None]
  - MYOCLONUS [None]
  - SEDATION [None]
